FAERS Safety Report 4664754-1 (Version None)
Quarter: 2005Q2

REPORT INFORMATION
  Report Type: 
  Country: None (occurrence: None)
  Receive Date: 20050518
  Receipt Date: 20050511
  Transmission Date: 20051028
  Serious: Yes (Hospitalization)
  Sender: FDA-Public Use
  Company Number: US-JNJFOC-20041205975

PATIENT
  Sex: Female
  Weight: 68.04 kg

DRUGS (8)
  1. REMICADE [Suspect]
     Route: 042
  2. REMICADE [Suspect]
     Indication: RHEUMATOID ARTHRITIS
     Route: 042
  3. DARVOCET [Concomitant]
  4. DARVOCET [Concomitant]
     Indication: PAIN
  5. NORVASC [Concomitant]
     Indication: BLOOD PRESSURE
  6. PROZAC [Concomitant]
     Indication: BIPOLAR DISORDER
  7. METHOTREXATE [Concomitant]
     Indication: RHEUMATOID ARTHRITIS
  8. FOLIC ACID [Concomitant]

REACTIONS (4)
  - ASTHENIA [None]
  - DYSSTASIA [None]
  - FEAR OF FALLING [None]
  - MUSCULAR WEAKNESS [None]
